FAERS Safety Report 5210563-4 (Version None)
Quarter: 2007Q1

REPORT INFORMATION
  Report Type: 
  Country: None (occurrence: None)
  Receive Date: 20070117
  Receipt Date: 20070105
  Transmission Date: 20070707
  Serious: Yes (Other)
  Sender: FDA-Public Use
  Company Number: AU-ROCHE-402430

PATIENT
  Age: 49 Year
  Sex: Male
  Weight: 70.6 kg

DRUGS (4)
  1. PEG-INTERFERON ALFA 2A (RO 25-8310) [Suspect]
     Route: 058
     Dates: start: 20050215, end: 20050418
  2. PEG-INTERFERON ALFA 2A (RO 25-8310) [Suspect]
     Route: 058
     Dates: start: 20050927
  3. RIBAVIRIN [Suspect]
     Route: 048
     Dates: start: 20050215, end: 20050418
  4. RIBAVIRIN [Suspect]
     Route: 048
     Dates: start: 20050927

REACTIONS (1)
  - SYNCOPE [None]
